FAERS Safety Report 4640395-7 (Version None)
Quarter: 2005Q2

REPORT INFORMATION
  Report Type: 
  Country: None (occurrence: None)
  Receive Date: 20050419
  Receipt Date: 20050404
  Transmission Date: 20051028
  Serious: Yes (Hospitalization, Other)
  Sender: FDA-Public Use
  Company Number: 2005-0008062

PATIENT
  Age: 51 Year
  Sex: Male
  Weight: 53.0709 kg

DRUGS (14)
  1. VIREAD [Suspect]
     Indication: HIV INFECTION
     Dosage: 300 MG, 1 IN 1 D
     Dates: start: 20020118, end: 20050116
  2. ABACAVIR (ABACAVIR) [Suspect]
     Indication: HIV INFECTION
     Dosage: 300 MG, 2 IN 1 D
     Dates: start: 20020118, end: 20050116
  3. KALETRA [Suspect]
     Indication: HIV INFECTION
     Dosage: 3 DOSAGE FORMS, 2 IN 1 D
     Dates: start: 20020118, end: 20050116
  4. DIDANOSINE [Suspect]
     Indication: HIV INFECTION
     Dosage: 400 MG, 1 IN 1 D
     Dates: start: 20020118, end: 20050116
  5. CARISOPRODOL (CARISOPRODOL) (TABLET) [Concomitant]
  6. FENTANYL [Concomitant]
  7. FLUCONAZOLE (FLUCONAZOLE) (TABLET) [Concomitant]
  8. GLYBURIDE (GLIBENCLAMIDE) (TABLET) [Concomitant]
  9. PROMETHAZINE (PROMETHAZINE) (TABLET) [Concomitant]
  10. RABEPRAZOLE (RABEPRAZOLE) (TABLET) [Concomitant]
  11. BACRTIM DS (BACTRIM) (TABLET) [Concomitant]
  12. LORATADINE (LORATADINE) (TABLET) [Concomitant]
  13. LORTAB [Concomitant]
  14. LORAZEPAM [Concomitant]

REACTIONS (31)
  - ASCITES [None]
  - BLOOD ALKALINE PHOSPHATASE INCREASED [None]
  - BLOOD CALCIUM DECREASED [None]
  - BONE MARROW OEDEMA [None]
  - CHEST PAIN [None]
  - CHILLS [None]
  - CHOLESTASIS [None]
  - DECREASED APPETITE [None]
  - DYSPNOEA EXERTIONAL [None]
  - FANCONI SYNDROME [None]
  - HEADACHE [None]
  - HEART RATE INCREASED [None]
  - HEPATIC FAILURE [None]
  - HEPATIC STEATOSIS [None]
  - LACTIC ACIDOSIS [None]
  - METABOLIC ACIDOSIS [None]
  - NAUSEA [None]
  - OEDEMA PERIPHERAL [None]
  - ORTHOPNOEA [None]
  - PAIN IN EXTREMITY [None]
  - PANCREATITIS [None]
  - POLYDIPSIA [None]
  - PORTAL HYPERTENSION [None]
  - PROSTATIC ABSCESS [None]
  - PROSTATITIS [None]
  - PROTEIN TOTAL INCREASED [None]
  - RENAL CYST [None]
  - RENAL TUBULAR ACIDOSIS [None]
  - VISION BLURRED [None]
  - WEIGHT DECREASED [None]
  - WEIGHT INCREASED [None]
